FAERS Safety Report 8461160-9 (Version None)
Quarter: 2012Q2

REPORT INFORMATION
  Report Type: 
  Country: None (occurrence: None)
  Receive Date: 20120625
  Receipt Date: 20120619
  Transmission Date: 20120825
  Serious: No
  Sender: FDA-Public Use
  Company Number: US-PFIZER INC-2012130595

PATIENT
  Sex: Female

DRUGS (1)
  1. PREMARIN [Suspect]
     Indication: HORMONE LEVEL ABNORMAL
     Dosage: UNK, 2X/WEEK
     Route: 067

REACTIONS (5)
  - BURNING SENSATION [None]
  - SKIN BURNING SENSATION [None]
  - PAIN [None]
  - DRUG INEFFECTIVE [None]
  - UTERINE PAIN [None]
